FAERS Safety Report 23365756 (Version 1)
Quarter: 2024Q1

REPORT INFORMATION
  Report Type: Spontaneous
  Country: FR (occurrence: FR)
  Receive Date: 20240104
  Receipt Date: 20240104
  Transmission Date: 20240410
  Serious: Yes (Hospitalization)
  Sender: FDA-Public Use
  Company Number: None

PATIENT
  Age: 30 Year
  Sex: Male
  Weight: 63 kg

DRUGS (3)
  1. XANAX [Suspect]
     Active Substance: ALPRAZOLAM
     Indication: Product used for unknown indication
     Dosage: 18 DOSAGE FORM, 1 TOTAL
     Route: 048
     Dates: start: 20231124, end: 20231124
  2. ARIPIPRAZOLE [Suspect]
     Active Substance: ARIPIPRAZOLE
     Indication: Product used for unknown indication
     Dosage: 28 DOSAGE FORM, 1 TOTAL (10 MILLIGRAMS, 28 TABLETS)
     Route: 048
     Dates: start: 20231124, end: 20231124
  3. DIAZEPAM [Suspect]
     Active Substance: DIAZEPAM
     Indication: Product used for unknown indication
     Dosage: 60 DOSAGE FORM, 1 TOTAL (10 MILLIGRAMS, 60 TABLETS))
     Route: 048
     Dates: start: 20231124, end: 20231124

REACTIONS (3)
  - Poisoning deliberate [Recovered/Resolved]
  - Altered state of consciousness [Recovered/Resolved]
  - Intentional overdose [Unknown]

NARRATIVE: CASE EVENT DATE: 20231124
